FAERS Safety Report 13079764 (Version 2)
Quarter: 2017Q2

REPORT INFORMATION
  Report Type: Spontaneous
  Country: US (occurrence: US)
  Receive Date: 20170103
  Receipt Date: 20170412
  Transmission Date: 20170830
  Serious: Yes (Hospitalization, Disabling)
  Sender: FDA-Public Use
  Company Number: US-009507513-1612USA008161

PATIENT
  Age: 59 Year
  Sex: Male
  Weight: 92.06 kg

DRUGS (4)
  1. TICE BCG [Suspect]
     Active Substance: BACILLUS CALMETTE-GUERIN SUBSTRAIN TICE LIVE ANTIGEN
     Indication: BLADDER TRANSITIONAL CELL CARCINOMA
     Dosage: UNK,  ONCE PER WEEK (X 6 WEEKS)
     Route: 043
     Dates: start: 20150901
  2. TICE BCG [Suspect]
     Active Substance: BACILLUS CALMETTE-GUERIN SUBSTRAIN TICE LIVE ANTIGEN
     Dosage: UNK, ONCE PER WEEK  (X 3 WEEKS)
     Route: 043
     Dates: start: 20151201
  3. TICE BCG [Suspect]
     Active Substance: BACILLUS CALMETTE-GUERIN SUBSTRAIN TICE LIVE ANTIGEN
     Dosage: UNK, ONCE PER WEEK (X 3 WEEKS)
     Route: 043
     Dates: start: 20160216
  4. TICE BCG [Suspect]
     Active Substance: BACILLUS CALMETTE-GUERIN SUBSTRAIN TICE LIVE ANTIGEN
     Dosage: 50 MG, ONCE PER WEEK (X 3 WEEKS)
     Route: 043
     Dates: start: 20161206, end: 20161220

REACTIONS (2)
  - Nausea [Unknown]
  - Dysuria [Unknown]

NARRATIVE: CASE EVENT DATE: 20161206
